FAERS Safety Report 8884676 (Version 1)
Quarter: 2012Q4

REPORT INFORMATION
  Report Type: 
  Country: US (occurrence: US)
  Receive Date: 20121104
  Receipt Date: 20121104
  Transmission Date: 20130627
  Serious: Yes (Other)
  Sender: FDA-Public Use
  Company Number: US-BAYER-2012-114667

PATIENT
  Age: 35 Year
  Sex: Female
  Weight: 60 kg

DRUGS (2)
  1. MIDOL [Suspect]
     Dosage: UNK, BID
     Route: 048
     Dates: start: 201010
  2. TRI-SPRINTEC [Concomitant]

REACTIONS (3)
  - Bradyphrenia [Recovered/Resolved]
  - Feeling abnormal [Recovered/Resolved]
  - Somnolence [None]
